FAERS Safety Report 21215554 (Version 1)
Quarter: 2022Q3

REPORT INFORMATION
  Report Type: Spontaneous
  Country: US (occurrence: None)
  Receive Date: 20220815
  Receipt Date: 20220815
  Transmission Date: 20221027
  Serious: Yes (Death)
  Sender: FDA-Public Use
  Company Number: None

PATIENT
  Age: 76 Year
  Sex: Male
  Weight: 82.55 kg

DRUGS (8)
  1. ANAGRELIDE [Suspect]
     Active Substance: ANAGRELIDE
     Dosage: FREQUENCY : 3 TIMES A DAY;?
     Route: 048
     Dates: end: 20220810
  2. ASPIRIN [Concomitant]
     Active Substance: ASPIRIN
  3. DEXAMETHASONE [Concomitant]
     Active Substance: DEXAMETHASONE
  4. FLUCONAZOLE [Concomitant]
     Active Substance: FLUCONAZOLE
  5. HYDROCHLOROTHIAZIDE [Concomitant]
     Active Substance: HYDROCHLOROTHIAZIDE
  6. HYDROXYUREA [Concomitant]
     Active Substance: HYDROXYUREA
  7. LEVETIRACETAM [Concomitant]
     Active Substance: LEVETIRACETAM
  8. PANTOPRAZOLE [Concomitant]
     Active Substance: PANTOPRAZOLE

REACTIONS (1)
  - Death [None]

NARRATIVE: CASE EVENT DATE: 20220810
